FAERS Safety Report 25835209 (Version 1)
Quarter: 2025Q3

REPORT INFORMATION
  Report Type: Spontaneous
  Country: EU (occurrence: EU)
  Receive Date: 20250923
  Receipt Date: 20250923
  Transmission Date: 20251021
  Serious: Yes (Other)
  Sender: RANBAXY
  Company Number: EU-PFIZER INC-202500102910

PATIENT
  Age: 36 Year
  Sex: Female

DRUGS (2)
  1. DOXORUBICIN HYDROCHLORIDE [Suspect]
     Active Substance: DOXORUBICIN HYDROCHLORIDE
     Indication: HER2 positive breast cancer
     Route: 065
     Dates: start: 202407, end: 202412
  2. TRASTUZUMAB [Suspect]
     Active Substance: TRASTUZUMAB
     Indication: HER2 positive breast cancer
     Route: 065
     Dates: start: 202407, end: 202412

REACTIONS (2)
  - Malignant neoplasm progression [Unknown]
  - HER2 positive breast cancer [Unknown]

NARRATIVE: CASE EVENT DATE: 20240701
